FAERS Safety Report 21603516 (Version 1)
Quarter: 2022Q4

REPORT INFORMATION
  Report Type: Spontaneous
  Country: US (occurrence: None)
  Receive Date: 20221116
  Receipt Date: 20221116
  Transmission Date: 20230113
  Serious: Yes (Other)
  Sender: FDA-Public Use
  Company Number: None

PATIENT
  Age: 61 Year
  Sex: Female
  Weight: 86.85 kg

DRUGS (2)
  1. KAPSPARGO [Suspect]
     Active Substance: METOPROLOL SUCCINATE
     Indication: Hypertension
  2. KAPSPARGO [Concomitant]
     Active Substance: METOPROLOL SUCCINATE
     Dates: start: 20180414

REACTIONS (6)
  - Nightmare [None]
  - Insomnia [None]
  - Tinnitus [None]
  - Nausea [None]
  - Headache [None]
  - Dyspnoea [None]

NARRATIVE: CASE EVENT DATE: 20180414
